FAERS Safety Report 21047659 (Version 1)
Quarter: 2022Q3

REPORT INFORMATION
  Report Type: Spontaneous
  Country: NZ (occurrence: NZ)
  Receive Date: 20220706
  Receipt Date: 20220706
  Transmission Date: 20221027
  Serious: Yes (Death, Hospitalization, Other)
  Sender: FDA-Public Use
  Company Number: NZ-NOVARTISPH-NVSC2022NZ152503

PATIENT
  Age: 65 Year
  Sex: Female

DRUGS (15)
  1. CYCLOSPORINE [Suspect]
     Active Substance: CYCLOSPORINE
     Indication: Pyoderma gangrenosum
     Dosage: 3 MG, QD
     Route: 065
     Dates: start: 201906, end: 202102
  2. CYCLOSPORINE [Suspect]
     Active Substance: CYCLOSPORINE
     Dosage: 5 MG/KG, QD
     Route: 065
     Dates: start: 20210505
  3. CYCLOPHOSPHAMIDE [Suspect]
     Active Substance: CYCLOPHOSPHAMIDE
     Indication: Rheumatoid arthritis
     Dosage: 1 DOSAGE FORM OF 12.5 MG/KG, BIW
     Route: 065
     Dates: start: 20210326
  4. METHOTREXATE [Suspect]
     Active Substance: METHOTREXATE
     Indication: Pyoderma gangrenosum
     Dosage: 20 MG, QW
     Route: 065
     Dates: start: 201906, end: 202010
  5. PREDNISONE [Suspect]
     Active Substance: PREDNISONE
     Indication: Pyoderma gangrenosum
     Dosage: 40 MG, QD (40-60 MG)
     Route: 065
     Dates: start: 201906
  6. TOCILIZUMAB [Suspect]
     Active Substance: TOCILIZUMAB
     Indication: Pyoderma gangrenosum
     Dosage: UNK
     Route: 065
     Dates: start: 202002, end: 202003
  7. INFLIXIMAB [Suspect]
     Active Substance: INFLIXIMAB
     Indication: Pyoderma gangrenosum
     Dosage: 470 MG, IVI, EVERY 6 WEEKS
     Route: 065
     Dates: start: 20200414, end: 202102
  8. DAPSONE [Suspect]
     Active Substance: DAPSONE
     Indication: Pyoderma gangrenosum
     Dosage: UNK
     Route: 065
     Dates: start: 202008, end: 202101
  9. COLCHICINE [Suspect]
     Active Substance: COLCHICINE
     Indication: Pyoderma gangrenosum
     Dosage: 1 MG TDS
     Route: 065
     Dates: start: 202012, end: 202101
  10. DOXYCYCLINE [Suspect]
     Active Substance: DOXYCYCLINE
     Indication: Pyoderma gangrenosum
     Dosage: UNK
     Route: 065
  11. HUMAN IMMUNOGLOBULIN G [Suspect]
     Active Substance: HUMAN IMMUNOGLOBULIN G
     Indication: Product used for unknown indication
     Dosage: 2 GRAM PER KILOGRAM 4 WEEKLY
     Route: 065
     Dates: start: 20210226
  12. HYDROXYCHLOROQUINE [Suspect]
     Active Substance: HYDROXYCHLOROQUINE
     Indication: Rheumatoid arthritis
     Dosage: UNK
     Route: 065
  13. SULFASALAZINE [Suspect]
     Active Substance: SULFASALAZINE
     Indication: Rheumatoid arthritis
     Dosage: UNK
     Route: 065
  14. OCRELIZUMAB [Suspect]
     Active Substance: OCRELIZUMAB
     Indication: Rheumatoid arthritis
     Dosage: UNK
     Route: 065
  15. LEFLUNOMIDE [Suspect]
     Active Substance: LEFLUNOMIDE
     Indication: Rheumatoid arthritis
     Dosage: UNK
     Route: 065

REACTIONS (23)
  - Pyoderma gangrenosum [Fatal]
  - Pain in extremity [Fatal]
  - Ulcer [Fatal]
  - Sepsis [Fatal]
  - Pulmonary embolism [Unknown]
  - Lung disorder [Unknown]
  - Infection [Unknown]
  - Lower respiratory tract infection [Unknown]
  - Sternal fracture [Unknown]
  - Respiratory failure [Unknown]
  - Necrotising fasciitis [Unknown]
  - Spinal compression fracture [Unknown]
  - Hepatic function abnormal [Unknown]
  - Anaemia [Unknown]
  - Osteoporosis [Unknown]
  - Pain [Unknown]
  - Sneezing [Unknown]
  - Cushingoid [Unknown]
  - Chronic obstructive pulmonary disease [Unknown]
  - Mobility decreased [Unknown]
  - Gastrointestinal disorder [Unknown]
  - Drug resistance [Unknown]
  - Drug ineffective [Unknown]

NARRATIVE: CASE EVENT DATE: 20190801
